FAERS Safety Report 19611707 (Version 4)
Quarter: 2021Q4

REPORT INFORMATION
  Report Type: Report from Study
  Country: US (occurrence: US)
  Receive Date: 20210726
  Receipt Date: 20211022
  Transmission Date: 20220303
  Serious: Yes (Other)
  Sender: FDA-Public Use
  Company Number: US-BAYER-2021-176490

PATIENT

DRUGS (2)
  1. EYLEA [Suspect]
     Active Substance: AFLIBERCEPT
     Indication: Neovascular age-related macular degeneration
     Dosage: TOTAL NUMBER OF DOSES UNKNOWN,
     Route: 031
     Dates: end: 20190114
  2. EYLEA [Suspect]
     Active Substance: AFLIBERCEPT
     Dosage: UNK, LAST DOSE RECEIVED
     Route: 031
     Dates: start: 20190114, end: 20190114

REACTIONS (2)
  - Blindness [Not Recovered/Not Resolved]
  - Bacterial endophthalmitis [Recovered/Resolved with Sequelae]

NARRATIVE: CASE EVENT DATE: 20190116
